FAERS Safety Report 9304820 (Version 1)
Quarter: 2013Q2

REPORT INFORMATION
  Report Type: Report from Study
  Country: FI (occurrence: FI)
  Receive Date: 20130523
  Receipt Date: 20130523
  Transmission Date: 20140414
  Serious: Yes (Other)
  Sender: FDA-Public Use
  Company Number: FI-ROCHE-1227084

PATIENT
  Sex: Female

DRUGS (3)
  1. HERCEPTIN [Suspect]
     Indication: BREAST CANCER METASTATIC
     Route: 065
  2. EPIRUBICIN [Concomitant]
  3. TYVERB [Concomitant]

REACTIONS (1)
  - Metastases to central nervous system [Not Recovered/Not Resolved]
